FAERS Safety Report 17236957 (Version 1)
Quarter: 2019Q4

REPORT INFORMATION
  Report Type: Spontaneous
  Country: US (occurrence: US)
  Receive Date: 20191211
  Receipt Date: 20191211
  Transmission Date: 20200122
  Serious: No
  Sender: FDA-Public Use
  Company Number: None

PATIENT
  Age: 60 Year
  Sex: Male

DRUGS (1)
  1. BOTOX [Suspect]
     Active Substance: ONABOTULINUMTOXINA
     Route: 030
     Dates: start: 2018

REACTIONS (4)
  - Pain [None]
  - Surgery [None]
  - Therapy cessation [None]
  - Post procedural complication [None]

NARRATIVE: CASE EVENT DATE: 20191211
